FAERS Safety Report 10951070 (Version 1)
Quarter: 2015Q1

REPORT INFORMATION
  Report Type: Spontaneous
  Country: US (occurrence: None)
  Receive Date: 20150226
  Receipt Date: 20150226
  Transmission Date: 20150721
  Serious: Yes (Hospitalization)
  Sender: FDA-Public Use
  Company Number: TPA2008A01782

PATIENT
  Age: 66 Year
  Sex: Male
  Weight: 90.72 kg

DRUGS (4)
  1. COZAAR (LOSARTAN POTASSIUM) [Concomitant]
  2. LIPITOR [Concomitant]
     Active Substance: ATORVASTATIN CALCIUM
  3. METFORMIN [Concomitant]
     Active Substance: METFORMIN HYDROCHLORIDE
  4. ACTOS [Suspect]
     Active Substance: PIOGLITAZONE HYDROCHLORIDE
     Dosage: 1 IN 1 D
     Route: 048
     Dates: end: 2008

REACTIONS (2)
  - Oedema [None]
  - Cardiac failure congestive [None]

NARRATIVE: CASE EVENT DATE: 2008
